FAERS Safety Report 17918229 (Version 2)
Quarter: 2020Q2

REPORT INFORMATION
  Report Type: Spontaneous
  Country: BG (occurrence: BG)
  Receive Date: 20200619
  Receipt Date: 20200625
  Transmission Date: 20200714
  Serious: Yes (Other)
  Sender: FDA-Public Use
  Company Number: BG-ASTRAZENECA-2020SE77692

PATIENT
  Age: 50 Year
  Sex: Female

DRUGS (1)
  1. LYNPARZA [Suspect]
     Active Substance: OLAPARIB
     Indication: OVARIAN CANCER
     Dosage: SINGLE DOSE OF TWO 150MG TABLETS
     Route: 048
     Dates: start: 202006

REACTIONS (2)
  - Palpitations [Recovered/Resolved]
  - Dyspnoea [Recovered/Resolved]
